FAERS Safety Report 4365591-8 (Version None)
Quarter: 2004Q2

REPORT INFORMATION
  Report Type: 
  Country: None (occurrence: None)
  Receive Date: 20040526
  Receipt Date: 20040514
  Transmission Date: 20050107
  Serious: Yes (Hospitalization)
  Sender: FDA-Public Use
  Company Number: FR-MERCK-0405FRA00043

PATIENT
  Age: 68 Year
  Sex: Male
  Weight: 140 kg

DRUGS (1)
  1. FOSAMAX [Suspect]
     Indication: OSTEOPOROSIS
     Route: 048
     Dates: start: 20040201, end: 20040415

REACTIONS (4)
  - BLOOD CREATININE INCREASED [None]
  - CHRONIC RESPIRATORY FAILURE [None]
  - FACE OEDEMA [None]
  - RESPIRATORY DISTRESS [None]
